FAERS Safety Report 24116307 (Version 1)
Quarter: 2024Q3

REPORT INFORMATION
  Report Type: Spontaneous
  Country: GB (occurrence: GB)
  Receive Date: 20240722
  Receipt Date: 20240722
  Transmission Date: 20241017
  Serious: Yes (Other)
  Sender: ACCORD
  Company Number: None

PATIENT
  Age: 52 Year
  Sex: Male
  Weight: 102 kg

DRUGS (13)
  1. ALLOPURINOL [Suspect]
     Active Substance: ALLOPURINOL
     Indication: Product used for unknown indication
     Dosage: 100 MG
     Dates: start: 20240702
  2. FLUCLOXACILLIN [Concomitant]
     Active Substance: FLUCLOXACILLIN
     Dosage: TAKE ONE 4 TIMES/DAY
     Dates: start: 20240405, end: 20240412
  3. CODEINE PHOSPHATE [Concomitant]
     Active Substance: CODEINE PHOSPHATE
     Dosage: TAKE ONE 4 TIMES/DAY
     Dates: start: 20240415, end: 20240429
  4. PREDNISOLONE [Concomitant]
     Active Substance: PREDNISOLONE
     Dosage: 6 DAILY FOR 2 DAYS, THEN REDUCE BY ONE TABLET (5MG) EVERY 2 DAYS
     Dates: start: 20240426, end: 20240503
  5. NAPROXEN [Concomitant]
     Active Substance: NAPROXEN
     Dosage: TAKE ONE TWICE DAILY
     Dates: start: 20240531, end: 20240628
  6. TRAMADOL [Concomitant]
     Active Substance: TRAMADOL\TRAMADOL HYDROCHLORIDE
     Dosage: TAKE ONE OR TWO UP TO FOUR TIMES A DAY ONLY WHEN REQUIRED.
     Dates: start: 20240531, end: 20240607
  7. OMEPRAZOLE [Concomitant]
     Active Substance: OMEPRAZOLE
     Dates: start: 20240531, end: 20240628
  8. COLCHICINE [Concomitant]
     Active Substance: COLCHICINE
     Dosage: ONCE DAILY
     Dates: start: 20240605
  9. FEBUXOSTAT [Concomitant]
     Active Substance: FEBUXOSTAT
     Dosage: HALF TABLET X TWO WEEKS AND THEN ONE TABLET - C...
     Dates: start: 20240703
  10. HYALURONATE SODIUM [Concomitant]
     Active Substance: HYALURONATE SODIUM
     Dosage: 1DROP BOTH EYES, FOUR TIMES A DAY
     Dates: start: 20191119, end: 20240703
  11. VITAMIN A PALMITATE [Concomitant]
     Active Substance: VITAMIN A PALMITATE
     Indication: Ill-defined disorder
     Dosage: 1CM BOTH EYES AT NIGHT
     Dates: start: 20191119, end: 20240703
  12. BECLOMETHASONE DIPROPIONATE [Concomitant]
     Active Substance: BECLOMETHASONE DIPROPIONATE
     Dosage: INHALE 1 DOSE TWICE DAILY
     Dates: start: 20230310
  13. ALBUTEROL [Concomitant]
     Active Substance: ALBUTEROL
     Dosage: ONE OR TWO PUFFS TO BE INHALED FOUR TIMES A DAY...
     Dates: start: 20231211

REACTIONS (1)
  - Gingival bleeding [Recovered/Resolved]
